FAERS Safety Report 4380038-3 (Version None)
Quarter: 2004Q2

REPORT INFORMATION
  Report Type: 
  Country: None (occurrence: None)
  Receive Date: 20040614
  Receipt Date: 20040602
  Transmission Date: 20050107
  Serious: Yes (Life-Threatening, Other)
  Sender: FDA-Public Use
  Company Number: JP-2004-026189

PATIENT
  Age: 60 Year
  Sex: Female

DRUGS (3)
  1. PROSCOPE 300 (IOPROMIDE) INFUSION [Suspect]
     Indication: COMPUTERISED TOMOGRAM
     Dosage: 100 ML, 1 DOSE 2ML/SEC, INTRAVENOUS
     Route: 042
     Dates: start: 20040520, end: 20040520
  2. LEVOTHYROXINE SODIUM [Concomitant]
  3. SODIUM CHLORIDE 0.9% [Concomitant]

REACTIONS (10)
  - ANAPHYLACTIC SHOCK [None]
  - BLOOD PRESSURE IMMEASURABLE [None]
  - CYANOSIS [None]
  - DYSPNOEA [None]
  - GENERALISED OEDEMA [None]
  - HAEMATEMESIS [None]
  - HEADACHE [None]
  - HYPOAESTHESIA [None]
  - PULSE ABSENT [None]
  - STOOLS WATERY [None]
